FAERS Safety Report 5299506-5 (Version None)
Quarter: 2007Q2

REPORT INFORMATION
  Report Type: 
  Country: None (occurrence: None)
  Receive Date: 20070417
  Receipt Date: 20070312
  Transmission Date: 20071010
  Serious: Yes (Other)
  Sender: FDA-Public Use
  Company Number: US-SANOFI-SYNTHELABO-A03200702340

PATIENT
  Sex: Male

DRUGS (7)
  1. AMBIEN [Suspect]
     Indication: SLEEP APNOEA SYNDROME
     Dosage: 1/2 TABLET
     Route: 048
     Dates: start: 20060101, end: 20060101
  2. AMBIEN [Suspect]
     Indication: INSOMNIA
     Dosage: 1/2 TABLET
     Route: 048
     Dates: start: 20060101, end: 20060101
  3. AMBIEN [Suspect]
     Indication: SLEEP DISORDER
     Dosage: 1/2 TABLET
     Route: 048
     Dates: start: 20060101, end: 20060101
  4. AMBIEN [Suspect]
     Route: 048
     Dates: start: 20051101, end: 20051201
  5. AMBIEN [Suspect]
     Route: 048
     Dates: start: 20051101, end: 20051201
  6. AMBIEN [Suspect]
     Route: 048
     Dates: start: 20051101, end: 20051201
  7. ALCOHOL [Concomitant]
     Dosage: UNK
     Route: 048

REACTIONS (7)
  - ABNORMAL BEHAVIOUR [None]
  - AMNESIA [None]
  - DEPRESSION [None]
  - IMPAIRED DRIVING ABILITY [None]
  - ROAD TRAFFIC ACCIDENT [None]
  - SLEEP TALKING [None]
  - SLEEP WALKING [None]
